FAERS Safety Report 23235803 (Version 3)
Quarter: 2024Q1

REPORT INFORMATION
  Report Type: Spontaneous
  Country: US (occurrence: US)
  Receive Date: 20231128
  Receipt Date: 20240305
  Transmission Date: 20240410
  Serious: Yes (Other)
  Sender: FDA-Public Use
  Company Number: US-PFIZER INC-202300385781

PATIENT
  Age: 74 Year
  Sex: Male
  Weight: 81.179 kg

DRUGS (1)
  1. PAXLOVID [Suspect]
     Active Substance: NIRMATRELVIR\RITONAVIR
     Indication: COVID-19 treatment
     Dosage: [PF-07321332 300 MG]/[RITONAVIR 100 MG]; 2X/DAY
     Route: 048
     Dates: start: 20231118, end: 20231119

REACTIONS (14)
  - Dysphagia [Recovered/Resolved]
  - Throat tightness [Recovered/Resolved]
  - Dysphonia [Recovered/Resolved]
  - Dyspnoea [Recovered/Resolved]
  - Drug hypersensitivity [Recovered/Resolved with Sequelae]
  - Oropharyngeal pain [Recovered/Resolved]
  - Genital ulceration [Recovered/Resolved]
  - Genital blister [Recovered/Resolved]
  - Genital pain [Recovered/Resolved]
  - Skin exfoliation [Recovered/Resolved]
  - Hypersensitivity [Not Recovered/Not Resolved]
  - Oropharyngeal candidiasis [Unknown]
  - Fatigue [Unknown]
  - Scrotal ulcer [Recovered/Resolved]

NARRATIVE: CASE EVENT DATE: 20231119
